FAERS Safety Report 5045724-0 (Version None)
Quarter: 2006Q3

REPORT INFORMATION
  Report Type: 
  Country: None (occurrence: None)
  Receive Date: 20060710
  Receipt Date: 20060629
  Transmission Date: 20061208
  Serious: Yes (Other)
  Sender: FDA-Public Use
  Company Number: PHBS2006DE09807

PATIENT
  Age: 63 Year
  Sex: Female

DRUGS (6)
  1. RADIOTHERAPY [Concomitant]
     Indication: BONE PAIN
     Route: 065
  2. PAMIDRONATE DISODIUM [Suspect]
     Indication: METASTASES TO BONE
     Dosage: 90 MG, EVERY 4 WEEKS
     Route: 042
     Dates: start: 20020101
  3. SIMVASTATIN [Concomitant]
     Dosage: 40 MG/D
     Route: 065
  4. BISOPROLOL FUMARATE [Concomitant]
     Dosage: 5 MG/D
     Route: 065
  5. LETROZOLE [Concomitant]
     Dosage: 2.5 MG/D
     Route: 065
  6. THYROXIN [Concomitant]
     Dosage: 75 UG/D
     Route: 065

REACTIONS (11)
  - BLOOD ALBUMIN DECREASED [None]
  - BLOOD CHOLESTEROL INCREASED [None]
  - BLOOD CREATININE INCREASED [None]
  - BLOOD UREA INCREASED [None]
  - NEPHRITIS INTERSTITIAL [None]
  - NEPHROTIC SYNDROME [None]
  - OEDEMA PERIPHERAL [None]
  - PROTEINURIA [None]
  - RENAL FAILURE [None]
  - RENAL TUBULAR DISORDER [None]
  - URINARY CASTS [None]
